FAERS Safety Report 8087088 (Version 2)
Quarter: 2012Q4

REPORT INFORMATION
  Report Type: 
  Country: US (occurrence: US)
  Receive Date: 20110811
  Receipt Date: 20121022
  Transmission Date: 20130627
  Serious: No
  Sender: FDA-Public Use
  Company Number: US-US-EMD SERONO, INC.-7075604

PATIENT
  Sex: Female

DRUGS (5)
  1. REBIF [Suspect]
     Indication: MULTIPLE SCLEROSIS
     Dates: start: 20110608
  2. REBIF [Suspect]
     Route: 058
  3. OXYBUTININ [Concomitant]
     Indication: BLADDER DISORDER
  4. OXYBUTININ [Concomitant]
     Indication: POLLAKIURIA
  5. PROZAC [Concomitant]

REACTIONS (3)
  - Influenza like illness [Unknown]
  - Musculoskeletal stiffness [Unknown]
  - Fatigue [Unknown]
